FAERS Safety Report 5171761-1 (Version None)
Quarter: 2006Q4

REPORT INFORMATION
  Report Type: 
  Country: None (occurrence: None)
  Receive Date: 20061213
  Receipt Date: 20060612
  Transmission Date: 20070319
  Serious: No
  Sender: FDA-Public Use
  Company Number: US-AMGEN-KDL182654

PATIENT
  Sex: Female
  Weight: 69 kg

DRUGS (6)
  1. ENBREL [Suspect]
     Indication: RHEUMATOID ARTHRITIS
     Route: 058
     Dates: start: 20060412
  2. METHOTREXATE [Concomitant]
     Dates: start: 20050101
  3. PLAQUENIL [Concomitant]
     Dates: start: 20050101
  4. ACIDOPHILUS [Concomitant]
  5. ACTONEL [Concomitant]
  6. DARVOCET-N 100 [Concomitant]

REACTIONS (2)
  - ABDOMINAL PAIN LOWER [None]
  - NAUSEA [None]
